FAERS Safety Report 9417085 (Version 1)
Quarter: 2013Q3

REPORT INFORMATION
  Report Type: Spontaneous
  Country: DE (occurrence: None)
  Receive Date: 20130722
  Receipt Date: 20130722
  Transmission Date: 20140515
  Serious: Yes (Other)
  Sender: FDA-Public Use
  Company Number: SYM-2013-06784

PATIENT
  Age: 84 Year
  Sex: Male

DRUGS (2)
  1. FLUOROURACIL [Suspect]
     Indication: COLON CANCER
  2. FOLIC ACID (FOLIC ACID) (FOLIC ACID) [Concomitant]

REACTIONS (2)
  - Nausea [None]
  - Vomiting [None]
